FAERS Safety Report 5268940-1 (Version None)
Quarter: 2007Q1

REPORT INFORMATION
  Report Type: 
  Country: None (occurrence: None)
  Receive Date: 20070319
  Receipt Date: 20070312
  Transmission Date: 20070707
  Serious: Yes (Hospitalization)
  Sender: FDA-Public Use
  Company Number: AT-JNJFOC-20070302492

PATIENT
  Sex: Female
  Weight: 69 kg

DRUGS (7)
  1. DURAGESIC-100 [Suspect]
     Route: 062
  2. DURAGESIC-100 [Suspect]
     Dosage: FOR SHORT TIME ONLY
     Route: 062
  3. DURAGESIC-100 [Suspect]
     Indication: PAIN MANAGEMENT
     Route: 062
  4. PANTOPRAZOLE SODIUM [Concomitant]
     Indication: GASTROOESOPHAGEAL REFLUX DISEASE
     Dosage: 1-0-0
     Route: 065
  5. PROXEN [Concomitant]
     Dosage: 0.5-0-0.5
     Route: 065
  6. PROXEN [Concomitant]
     Indication: MUSCULOSKELETAL PAIN
     Dosage: 0.5-0-0 ON REQUEST
     Route: 065
  7. BURONIL [Concomitant]
     Indication: PSYCHOTIC DISORDER
     Route: 065

REACTIONS (2)
  - DRUG INEFFECTIVE [None]
  - SKIN HAEMORRHAGE [None]
